FAERS Safety Report 4568666-3 (Version None)
Quarter: 2005Q1

REPORT INFORMATION
  Report Type: 
  Country: None (occurrence: None)
  Receive Date: 20050202
  Receipt Date: 20041210
  Transmission Date: 20050727
  Serious: Yes (Hospitalization)
  Sender: FDA-Public Use
  Company Number: FR-MERCK-0412FRA00034

PATIENT
  Age: 83 Year
  Sex: Female

DRUGS (10)
  1. FOSAMAX [Suspect]
     Indication: OSTEOPOROSIS
     Route: 048
  2. LETROZOLE [Concomitant]
     Indication: BREAST CANCER FEMALE
     Route: 048
     Dates: start: 20010101
  3. RABEPRAZOLE SODIUM [Concomitant]
     Route: 048
     Dates: start: 20000101
  4. PREDNISONE [Concomitant]
     Indication: RHEUMATOID ARTHRITIS
     Route: 048
     Dates: start: 19940101
  5. METHOTREXATE [Suspect]
     Indication: RHEUMATOID ARTHRITIS
     Route: 048
     Dates: start: 19940101, end: 20040101
  6. FENOTEROL HYDROBROMIDE AND IPRATROPIUM BROMIDE [Concomitant]
     Route: 055
  7. TEMAZEPAM [Concomitant]
     Route: 048
  8. FENTANYL [Concomitant]
     Route: 061
  9. HYDROXYZINE HYDROCHLORIDE [Concomitant]
     Route: 048
  10. VITAMINS (UNSPECIFIED) [Concomitant]
     Route: 065

REACTIONS (10)
  - ACUTE RESPIRATORY FAILURE [None]
  - BACTERIAL ANTIGEN POSITIVE [None]
  - LYMPHOPENIA [None]
  - MALNUTRITION [None]
  - PNEUMONIA [None]
  - RESPIRATORY FAILURE [None]
  - STREPTOCOCCAL INFECTION [None]
  - THROMBOCYTOPENIA [None]
  - TRANSAMINASES INCREASED [None]
  - URINE ANALYSIS ABNORMAL [None]
